FAERS Safety Report 7243261-6 (Version None)
Quarter: 2011Q1

REPORT INFORMATION
  Report Type: 
  Country: None (occurrence: None)
  Receive Date: 20110125
  Receipt Date: 20110120
  Transmission Date: 20110831
  Serious: Yes (Other)
  Sender: FDA-Public Use
  Company Number: US-AMGEN-QUU423879

PATIENT
  Age: 85 Year
  Sex: Female
  Weight: 48.6 kg

DRUGS (9)
  1. CORTICOSTEROID NOS [Concomitant]
  2. LAXATIVES [Concomitant]
  3. NPLATE [Suspect]
     Dates: start: 20091101
  4. FLUCONAZOLE [Concomitant]
     Dosage: 100 MG, 3 TIMES/WK
  5. TRIMETHOPRIM + SULFAMETHOXAZOLE [Concomitant]
     Dosage: 800 MG, 3 TIMES/WK
  6. FIBERCON                           /00567701/ [Concomitant]
  7. CYCLOSPORINE [Concomitant]
     Dosage: UNK UNK, UNK
  8. NPLATE [Suspect]
     Indication: IDIOPATHIC THROMBOCYTOPENIC PURPURA
     Dosage: 75 A?G, QWK
     Dates: start: 20091101
  9. LORAZEPAM [Concomitant]
     Dosage: UNK UNK, UNK

REACTIONS (12)
  - FATIGUE [None]
  - HEARING IMPAIRED [None]
  - WEIGHT DECREASED [None]
  - IMPAIRED HEALING [None]
  - ASTHENIA [None]
  - THERAPEUTIC RESPONSE DECREASED [None]
  - INSOMNIA [None]
  - WOUND INFECTION [None]
  - NASOPHARYNGITIS [None]
  - MALAISE [None]
  - BACK PAIN [None]
  - PAIN [None]
